FAERS Safety Report 9711086 (Version 3)
Quarter: 2013Q4

REPORT INFORMATION
  Report Type: Spontaneous
  Country: IE (occurrence: IE)
  Receive Date: 20131126
  Receipt Date: 20131213
  Transmission Date: 20140711
  Serious: Yes (Hospitalization, Other)
  Sender: FDA-Public Use
  Company Number: IE-MPIJNJ-2013JNJ000997

PATIENT
  Sex: 0

DRUGS (16)
  1. VELCADE [Suspect]
     Indication: PLASMA CELL MYELOMA
     Dosage: 1.0 MG/M2, CYCLIC
     Route: 058
     Dates: start: 20130911
  2. RANITIC [Concomitant]
     Dosage: 150 MG, UNK
  3. CYCLOPHOSPHAMIDE [Concomitant]
     Dosage: 500 MG, UNK
  4. DEXAMETHASONE [Concomitant]
     Dosage: 20 MG, UNK
  5. ZANIDEX [Concomitant]
     Dosage: 10 MG, UNK
     Route: 048
  6. ZOFRON                             /00955301/ [Concomitant]
  7. FLUCONAZOLE [Concomitant]
     Dosage: 50 MG, UNK
     Route: 048
  8. BISOP [Concomitant]
     Dosage: 5 MG, UNK
     Route: 048
  9. VALTREX [Concomitant]
     Dosage: 500 MG, UNK
  10. ONE ALPHA [Concomitant]
     Dosage: 0.25 MG, UNK
  11. FOLIC ACID [Concomitant]
     Dosage: 5 MG, UNK
  12. SEPTRIN [Concomitant]
     Dosage: 960 MG, UNK
  13. CYMBALTA [Concomitant]
     Dosage: 60 MG, UNK
  14. ZOTON [Concomitant]
     Dosage: 30 MG, UNK
  15. MEGACE [Concomitant]
     Dosage: 160 MG, UNK
     Route: 048
  16. RENAGEL                            /01459901/ [Concomitant]
     Dosage: 800 MG, UNK

REACTIONS (2)
  - Pulmonary embolism [Unknown]
  - Hospitalisation [Not Recovered/Not Resolved]
